FAERS Safety Report 24348659 (Version 1)
Quarter: 2024Q3

REPORT INFORMATION
  Report Type: Spontaneous
  Country: FR (occurrence: FR)
  Receive Date: 20240923
  Receipt Date: 20240923
  Transmission Date: 20241016
  Serious: Yes (Hospitalization, Other)
  Sender: AUROBINDO
  Company Number: FR-AFSSAPS-CN2024000854

PATIENT
  Age: 53 Year
  Sex: Male
  Weight: 104 kg

DRUGS (7)
  1. FUROSEMIDE [Interacting]
     Active Substance: FUROSEMIDE
     Indication: Oedema
     Dosage: 40 MILLIGRAM, ONCE A DAY (0-1-0)
     Route: 048
     Dates: start: 2024
  2. LEVOFLOXACIN [Suspect]
     Active Substance: LEVOFLOXACIN
     Indication: Staphylococcal bacteraemia
     Dosage: UNKNOWN
     Route: 048
     Dates: start: 202403, end: 20240630
  3. METHADONE HYDROCHLORIDE [Suspect]
     Active Substance: METHADONE HYDROCHLORIDE
     Indication: Product used for unknown indication
     Dosage: 20 MILLIGRAM, ONCE A DAY (1-0-0 DECREASE DOSE UNTIL STOP)
     Route: 048
     Dates: start: 2022, end: 20240717
  4. ARANESP [Concomitant]
     Active Substance: DARBEPOETIN ALFA
     Indication: Anaemia
     Dosage: 150 DOSAGE FORM, EVERY WEEK
     Route: 058
     Dates: start: 2024
  5. EUPANTOL [Concomitant]
     Active Substance: PANTOPRAZOLE SODIUM
     Indication: Gastrooesophageal reflux disease
     Dosage: 40 MILLIGRAM, ONCE A DAY (0-0-1)
     Route: 048
     Dates: start: 2024, end: 2024
  6. DUPHALAC [Concomitant]
     Active Substance: LACTULOSE
     Indication: Constipation
     Dosage: 4 DOSAGE FORM, ONCE A DAY
     Route: 048
     Dates: start: 2024, end: 2024
  7. IMOVANE [Concomitant]
     Active Substance: ZOPICLONE
     Indication: Sleep disorder
     Dosage: 7.5 MILLIGRAM, ONCE A DAY (0-0-1)
     Route: 048
     Dates: start: 2024

REACTIONS (1)
  - Torsade de pointes [Recovered/Resolved]

NARRATIVE: CASE EVENT DATE: 20240705
